FAERS Safety Report 4550914-7 (Version None)
Quarter: 2004Q4

REPORT INFORMATION
  Report Type: 
  Country: None (occurrence: None)
  Receive Date: 20041217
  Receipt Date: 20040907
  Transmission Date: 20050328
  Serious: No
  Sender: FDA-Public Use
  Company Number: 2004-BP-07832BP(0)

PATIENT
  Age: 68 Year
  Sex: Female

DRUGS (6)
  1. SPIRIVA [Suspect]
     Indication: CHRONIC OBSTRUCTIVE AIRWAYS DISEASE
     Dosage: 18 MCG (18 MCG), IH
     Route: 025
  2. ALBUTEROL [Concomitant]
  3. ADVAIR (SERETIDE MITE) [Concomitant]
  4. NASACORT [Concomitant]
  5. ZOCOR [Concomitant]
  6. ALLEGRA [Concomitant]

REACTIONS (1)
  - THROAT TIGHTNESS [None]
